FAERS Safety Report 5913370-X (Version None)
Quarter: 2008Q4

REPORT INFORMATION
  Report Type: 
  Country: None (occurrence: None)
  Receive Date: 20081009
  Receipt Date: 20081002
  Transmission Date: 20090506
  Serious: Yes (Hospitalization, Disabling)
  Sender: FDA-Public Use
  Company Number: PHHY2008GR23312

PATIENT
  Sex: Male
  Weight: 88 kg

DRUGS (6)
  1. EXJADE [Suspect]
     Indication: HAEMOSIDEROSIS
     Dosage: 1500 MG, QD
     Route: 048
     Dates: start: 20060921, end: 20080715
  2. EXJADE [Suspect]
     Indication: THALASSAEMIA BETA
  3. LASIX [Concomitant]
  4. ACCUPRON [Concomitant]
  5. ANGORON [Concomitant]
  6. KERLON [Concomitant]

REACTIONS (3)
  - BLADDER CANCER [None]
  - BLADDER MASS [None]
  - TRANSURETHRAL BLADDER RESECTION [None]
